FAERS Safety Report 16358712 (Version 1)
Quarter: 2019Q2

REPORT INFORMATION
  Report Type: Spontaneous
  Country: GB (occurrence: GB)
  Receive Date: 20190527
  Receipt Date: 20190527
  Transmission Date: 20190711
  Serious: Yes (Other)
  Sender: FDA-Public Use
  Company Number: PHHY2019GB121784

PATIENT
  Sex: Male

DRUGS (1)
  1. MOMETASONE FUROATE SANDOZ [Suspect]
     Active Substance: MOMETASONE FUROATE
     Indication: NASAL INFLAMMATION
     Dosage: UNK
     Route: 065

REACTIONS (4)
  - Condition aggravated [Recovering/Resolving]
  - Epistaxis [Recovering/Resolving]
  - Nasal inflammation [Recovering/Resolving]
  - Panic attack [Unknown]
